FAERS Safety Report 8615170-9 (Version None)
Quarter: 2012Q3

REPORT INFORMATION
  Report Type: 
  Country: None (occurrence: None)
  Receive Date: 20120823
  Receipt Date: 20120817
  Transmission Date: 20120928
  Serious: Yes (Hospitalization)
  Sender: FDA-Public Use
  Company Number: US-PFIZER INC-2012062186

PATIENT
  Age: 44 Year
  Sex: Male

DRUGS (2)
  1. PERCOCET [Concomitant]
     Indication: BONE PAIN
     Dosage: 5/325, 4 X DAY
     Dates: start: 20111201
  2. XALKORI [Suspect]
     Indication: LUNG NEOPLASM MALIGNANT
     Dosage: 250 MG, 2X/DAY, 5 + MONTHS ORAL
     Route: 048
     Dates: start: 20120227

REACTIONS (4)
  - PHOTOPSIA [None]
  - VISUAL IMPAIRMENT [None]
  - VISION BLURRED [None]
  - URTICARIA [None]
